FAERS Safety Report 21579356 (Version 1)
Quarter: 2022Q4

REPORT INFORMATION
  Report Type: Spontaneous
  Country: CH (occurrence: CH)
  Receive Date: 20221110
  Receipt Date: 20221110
  Transmission Date: 20230113
  Serious: Yes (Other)
  Sender: FDA-Public Use
  Company Number: None

PATIENT
  Age: 79 Year
  Sex: Male
  Weight: 79 kg

DRUGS (4)
  1. ALDACTONE [Suspect]
     Active Substance: SPIRONOLACTONE
     Indication: Generalised oedema
     Dosage: 50MG/D ON 30AUG2022
     Route: 048
     Dates: start: 20220830, end: 20220905
  2. ALDACTONE [Suspect]
     Active Substance: SPIRONOLACTONE
     Dosage: 200MG/D ON 05SEP2022
     Route: 048
     Dates: start: 20220830, end: 20220905
  3. TILUR [Suspect]
     Active Substance: ACEMETACIN
     Dosage: THE INTERVAL: 8 HOURS
     Route: 048
     Dates: end: 20220905
  4. TORSEMIDE [Concomitant]
     Active Substance: TORSEMIDE
     Dates: start: 20220831

REACTIONS (2)
  - Agranulocytosis [Recovered/Resolved]
  - Pyrexia [Recovered/Resolved]

NARRATIVE: CASE EVENT DATE: 20220905
